FAERS Safety Report 24393920 (Version 2)
Quarter: 2025Q4

REPORT INFORMATION
  Report Type: Spontaneous
  Country: US (occurrence: US)
  Receive Date: 20241003
  Receipt Date: 20251017
  Transmission Date: 20260118
  Serious: Yes (Other)
  Sender: DAIICHI
  Company Number: US-DAIICHI SANKYO, INC.-DS-2024-102294-USAA

PATIENT
  Age: 73 Year
  Sex: Female

DRUGS (2)
  1. ENHERTU [Suspect]
     Active Substance: FAM-TRASTUZUMAB DERUXTECAN-NXKI
     Indication: Breast cancer stage IV
     Dosage: 100 MG, ONCE EVERY 3 WK
     Route: 042
     Dates: start: 20230818
  2. ENHERTU [Suspect]
     Active Substance: FAM-TRASTUZUMAB DERUXTECAN-NXKI
     Indication: Breast cancer metastatic
     Dosage: UNK
     Route: 065
     Dates: start: 2024

REACTIONS (10)
  - Loss of consciousness [Unknown]
  - Deafness [Unknown]
  - Peripheral swelling [Unknown]
  - Mental impairment [Unknown]
  - General physical health deterioration [Unknown]
  - Joint swelling [Unknown]
  - Palpitations [Unknown]
  - Erythema [Unknown]
  - Adverse drug reaction [Unknown]
  - Product dose omission issue [Not Recovered/Not Resolved]

NARRATIVE: CASE EVENT DATE: 20240905
